FAERS Safety Report 21158364 (Version 3)
Quarter: 2022Q3

REPORT INFORMATION
  Report Type: Other
  Country: US (occurrence: US)
  Receive Date: 20220801
  Receipt Date: 20220906
  Transmission Date: 20221027
  Serious: Yes (Life-Threatening)
  Sender: FDA-Public Use
  Company Number: US-CLARUS THERAPEUTICS, INC.-2022-JATENZO-000060

PATIENT

DRUGS (4)
  1. JATENZO [Suspect]
     Active Substance: TESTOSTERONE UNDECANOATE
     Indication: Hypogonadism
     Dosage: 237 MILLIGRAM, BID
     Route: 048
     Dates: start: 2018
  2. JATENZO [Suspect]
     Active Substance: TESTOSTERONE UNDECANOATE
     Indication: Blood testosterone decreased
     Dosage: 237 MILLIGRAM, BID
     Route: 048
     Dates: start: 20210928
  3. JATENZO [Suspect]
     Active Substance: TESTOSTERONE UNDECANOATE
     Dosage: 237 MILLIGRAM, BID
     Route: 048
     Dates: start: 20220523, end: 20220528
  4. JATENZO [Suspect]
     Active Substance: TESTOSTERONE UNDECANOATE
     Dosage: 237 MILLIGRAM, BID
     Route: 048
     Dates: start: 20220721

REACTIONS (10)
  - Depressed level of consciousness [Recovered/Resolved]
  - Sleep disorder due to a general medical condition [Recovered/Resolved]
  - Tachyphrenia [Recovered/Resolved]
  - Insomnia [Recovered/Resolved]
  - Fatigue [Recovered/Resolved]
  - Somnolence [Recovered/Resolved]
  - Pain [Recovered/Resolved]
  - Depression [Recovered/Resolved]
  - Depression [Recovered/Resolved]
  - Anxiety [Recovered/Resolved]
